FAERS Safety Report 20346115 (Version 2)
Quarter: 2022Q1

REPORT INFORMATION
  Report Type: Report from Study
  Country: EC (occurrence: None)
  Receive Date: 20220118
  Receipt Date: 20220127
  Transmission Date: 20220423
  Serious: No
  Sender: FDA-Public Use
  Company Number: EC-Merck Healthcare KGaA-9242123

PATIENT
  Age: 29 Year
  Sex: Female

DRUGS (1)
  1. REBIF [Suspect]
     Active Substance: INTERFERON BETA-1A
     Indication: Multiple sclerosis
     Route: 058
     Dates: start: 20191211

REACTIONS (5)
  - Discomfort [Recovered/Resolved]
  - Pyrexia [Recovered/Resolved]
  - Maternal exposure during pregnancy [Recovered/Resolved]
  - Live birth [Recovered/Resolved]
  - Breast feeding [Not Recovered/Not Resolved]

NARRATIVE: CASE EVENT DATE: 20210101
